FAERS Safety Report 12456122 (Version 3)
Quarter: 2016Q3

REPORT INFORMATION
  Report Type: Spontaneous
  Country: RU (occurrence: RU)
  Receive Date: 20160610
  Receipt Date: 20160706
  Transmission Date: 20161109
  Serious: Yes (Hospitalization)
  Sender: FDA-Public Use
  Company Number: RU-SA-2016SA093788

PATIENT
  Age: 63 Year
  Sex: Male
  Weight: 90 kg

DRUGS (2)
  1. PLAVIX [Suspect]
     Active Substance: CLOPIDOGREL BISULFATE
     Indication: ACUTE CORONARY SYNDROME
     Dosage: DOSE AND FREQUENCY :: 300 MG -SINGLE DOSE
     Route: 048
     Dates: start: 20160409, end: 20160409
  2. PLAVIX [Suspect]
     Active Substance: CLOPIDOGREL BISULFATE
     Indication: ACUTE MYOCARDIAL INFARCTION
     Dosage: DOSE AND FREQUENCY :: 300 MG -SINGLE DOSE
     Route: 048
     Dates: start: 20160409, end: 20160409

REACTIONS (4)
  - Vascular stent thrombosis [Unknown]
  - Coronary artery thrombosis [Recovering/Resolving]
  - Chest pain [Unknown]
  - Off label use [Unknown]

NARRATIVE: CASE EVENT DATE: 20160409
